FAERS Safety Report 24947311 (Version 1)
Quarter: 2025Q1

REPORT INFORMATION
  Report Type: Spontaneous
  Country: CN (occurrence: CN)
  Receive Date: 20250210
  Receipt Date: 20250210
  Transmission Date: 20250409
  Serious: Yes (Hospitalization, Other)
  Sender: PANACEA BIOTEC PHARMA LIMITED
  Company Number: CN-PBT-010109

PATIENT
  Age: 53 Year
  Sex: Female

DRUGS (4)
  1. TACROLIMUS [Suspect]
     Active Substance: TACROLIMUS
     Indication: Systemic lupus erythematosus
     Route: 065
  2. MYCOPHENOLATE MOFETIL [Suspect]
     Active Substance: MYCOPHENOLATE MOFETIL
     Indication: Systemic lupus erythematosus
     Route: 065
  3. METHYLPREDNISOLONE [Suspect]
     Active Substance: METHYLPREDNISOLONE
     Indication: Systemic lupus erythematosus
     Route: 065
  4. TACROLIMUS [Suspect]
     Active Substance: TACROLIMUS
     Indication: Immunosuppression
     Dosage: DAY 30
     Route: 065

REACTIONS (7)
  - Pneumonia [Recovering/Resolving]
  - Systemic lupus erythematosus [Recovered/Resolved]
  - Thrombotic microangiopathy [Recovered/Resolved]
  - Non-cirrhotic portal hypertension [Recovered/Resolved]
  - COVID-19 [Recovered/Resolved]
  - Hepatic function abnormal [Unknown]
  - Product use in unapproved indication [Unknown]
